FAERS Safety Report 26137721 (Version 1)
Quarter: 2025Q4

REPORT INFORMATION
  Report Type: Spontaneous
  Country: EU (occurrence: EU)
  Receive Date: 20251209
  Receipt Date: 20251209
  Transmission Date: 20260118
  Serious: Yes (Life-Threatening)
  Sender: NOVO NORDISK
  Company Number: None

PATIENT
  Age: 67 Year
  Sex: Male
  Weight: 99.7 kg

DRUGS (8)
  1. NOVOSEVEN [Suspect]
     Active Substance: COAGULATION FACTOR VIIA RECOMBINANT HUMAN
     Indication: Shock haemorrhagic
     Dosage: 10MG
     Route: 042
     Dates: start: 20251002, end: 20251002
  2. CONFIDEX [Suspect]
     Active Substance: COAGULATION FACTOR IX HUMAN\COAGULATION FACTOR VII HUMAN\COAGULATION FACTOR X HUMAN\PROTEIN C\PROTEI
     Indication: Shock haemorrhagic
     Dosage: 3500IU
     Route: 042
     Dates: start: 20251002, end: 20251002
  3. CLOTTAFACT [Concomitant]
     Active Substance: FIBRINOGEN HUMAN
     Indication: Shock haemorrhagic
     Dosage: 6G
     Route: 042
     Dates: start: 20251002, end: 20251002
  4. ASPIRIN [Concomitant]
     Active Substance: ASPIRIN
     Dosage: 75 MG, QD (1 SACHET IN THE MORNING)
  5. FLUTICASONE FUROATE\VILANTEROL TRIFENATATE [Concomitant]
     Active Substance: FLUTICASONE FUROATE\VILANTEROL TRIFENATATE
     Dosage: 1 INHALATION IN THE MORNING
     Route: 055
  6. LYRICA [Concomitant]
     Active Substance: PREGABALIN
     Dosage: 1 TABLET IN THE MORNING
  7. HYDROCHLOROTHIAZIDE\NEBIVOLOL HYDROCHLORIDE [Concomitant]
     Active Substance: HYDROCHLOROTHIAZIDE\NEBIVOLOL HYDROCHLORIDE
     Dosage: 1 TABLET IN THE MORNING
  8. PREGABALIN [Concomitant]
     Active Substance: PREGABALIN
     Dosage: 1 TABLET IN THE EVENING

REACTIONS (1)
  - Ischaemic stroke [Recovered/Resolved with Sequelae]

NARRATIVE: CASE EVENT DATE: 20251004
